FAERS Safety Report 20471533 (Version 2)
Quarter: 2022Q2

REPORT INFORMATION
  Report Type: Spontaneous
  Country: US (occurrence: US)
  Receive Date: 20220214
  Receipt Date: 20220629
  Transmission Date: 20220721
  Serious: No
  Sender: FDA-Public Use
  Company Number: US-SA-SAC20220209000736

PATIENT
  Sex: Female

DRUGS (19)
  1. DUPIXENT [Suspect]
     Active Substance: DUPILUMAB
     Indication: Asthma
     Dosage: 200 MG, QOW
     Route: 058
     Dates: start: 20211026
  2. ALBUTEROL SULFATE [Concomitant]
     Active Substance: ALBUTEROL SULFATE
  3. AZITHROMYCIN [Concomitant]
     Active Substance: AZITHROMYCIN
  4. BENZONATATE [Concomitant]
     Active Substance: BENZONATATE
     Dosage: 100 MG
  5. BUDESONIDE [Concomitant]
     Active Substance: BUDESONIDE
     Dosage: 0.5MG/2
  6. DEPO-MEDROL [Concomitant]
     Active Substance: METHYLPREDNISOLONE ACETATE
     Dosage: 40MG/ML
  7. DULERA [Concomitant]
     Active Substance: FORMOTEROL FUMARATE DIHYDRATE\MOMETASONE FUROATE
     Dosage: 200-5MCG
  8. FLOVENT HFA [Concomitant]
     Active Substance: FLUTICASONE PROPIONATE
     Dosage: 44MCG
  9. IBUPROFEN [Concomitant]
     Active Substance: IBUPROFEN
     Dosage: 800 MG
  10. ALBUTEROL\IPRATROPIUM [Concomitant]
     Active Substance: ALBUTEROL\IPRATROPIUM
     Dosage: UNK
  11. BROM/PSE/DM [Concomitant]
     Dosage: UNK
  12. MELOXICAM [Concomitant]
     Active Substance: MELOXICAM
     Dosage: 15 MG
  13. MONTELUKAST SODIUM [Concomitant]
     Active Substance: MONTELUKAST SODIUM
     Dosage: UNK
  14. PREDNISONE [Concomitant]
     Active Substance: PREDNISONE
     Dosage: 20 MG
  15. METHYLPREDNISOLONE [Concomitant]
     Active Substance: METHYLPREDNISOLONE
     Dosage: 4 MG
  16. CLOBETASOL [Concomitant]
     Active Substance: CLOBETASOL
     Dosage: UNK
  17. METHOCARBAMOL [Concomitant]
     Active Substance: METHOCARBAMOL
     Dosage: UNK
  18. VITAMIN D NOS [Concomitant]
     Active Substance: VITAMIN D NOS
     Dosage: UNK
  19. CYANOCOBALAMIN [Concomitant]
     Active Substance: CYANOCOBALAMIN
     Dosage: UNK

REACTIONS (1)
  - Impaired quality of life [Unknown]
